FAERS Safety Report 5201112-5 (Version None)
Quarter: 2007Q1

REPORT INFORMATION
  Report Type: 
  Country: None (occurrence: None)
  Receive Date: 20070103
  Receipt Date: 20061220
  Transmission Date: 20070707
  Serious: Yes (Other)
  Sender: FDA-Public Use
  Company Number: GXKR2006GB08333

PATIENT
  Age: 70 Year
  Sex: Male

DRUGS (9)
  1. ASPIRIN [Suspect]
     Indication: CHEST PAIN
     Dosage: 75 MG, QD,
  2. CLOPIDOGREL [Suspect]
     Dosage: 300 MG,
  3. HEPARIN [Suspect]
     Indication: MYOCARDIAL INFARCTION
     Dosage: SEE IMAGE
  4. TENECTEPLASE (TENECTEPLASE) [Suspect]
     Indication: MYOCARDIAL INFARCTION
     Dosage: 50 MG, INTRAVENOUS
     Route: 042
  5. ATENOLOL [Concomitant]
  6. DOXAZOSIN (DOXAZOSIN) [Concomitant]
  7. GTN (GLYCERYL TRINITRATE) [Concomitant]
  8. MORPHINE [Concomitant]
  9. SIMVASTATIN [Concomitant]

REACTIONS (9)
  - ACUTE MYOCARDIAL INFARCTION [None]
  - CARDIAC ARREST [None]
  - DRUG INEFFECTIVE [None]
  - ELECTROCARDIOGRAM ST SEGMENT ELEVATION [None]
  - HAEMATEMESIS [None]
  - HAEMORRHAGE SUBCUTANEOUS [None]
  - OBSTRUCTIVE AIRWAYS DISORDER [None]
  - SUBCUTANEOUS HAEMATOMA [None]
  - VENTRICULAR FIBRILLATION [None]
